FAERS Safety Report 22988112 (Version 2)
Quarter: 2023Q4

REPORT INFORMATION
  Report Type: Spontaneous
  Country: US (occurrence: US)
  Receive Date: 20230926
  Receipt Date: 20231011
  Transmission Date: 20240110
  Serious: Yes (Other)
  Sender: FDA-Public Use
  Company Number: US-ORGANON-O2309USA001440

PATIENT
  Age: 28 Year
  Sex: Female
  Weight: 94.331 kg

DRUGS (3)
  1. NEXPLANON [Suspect]
     Active Substance: ETONOGESTREL
     Indication: Contraception
     Dosage: 1 IMPLANT IN LEFT UPPER ARM FOR 3 YEARS
     Route: 059
     Dates: start: 20220422, end: 20230818
  2. NEXPLANON [Suspect]
     Active Substance: ETONOGESTREL
     Indication: Contraception
     Dosage: 1 IMPLANT IN RIGHT ARM
     Route: 059
     Dates: start: 20230818
  3. NEXPLANON [Concomitant]
     Active Substance: ETONOGESTREL
     Dosage: 1 IMPLANT IN THE LEFT ARM
     Route: 059
     Dates: end: 20220422

REACTIONS (7)
  - Device dislocation [Recovered/Resolved]
  - Medical device site discomfort [Recovered/Resolved]
  - Vaginal haemorrhage [Recovered/Resolved]
  - Implant site erythema [Recovered/Resolved]
  - Implant site pain [Recovered/Resolved]
  - Device placement issue [Recovered/Resolved]
  - Device placement issue [Not Recovered/Not Resolved]

NARRATIVE: CASE EVENT DATE: 20220422
